FAERS Safety Report 8067947-9 (Version None)
Quarter: 2012Q1

REPORT INFORMATION
  Report Type: 
  Country: None (occurrence: None)
  Receive Date: 20120124
  Receipt Date: 20110908
  Transmission Date: 20120608
  Serious: No
  Sender: FDA-Public Use
  Company Number: US-AMGEN-USASP2011046046

PATIENT
  Age: 74 Year
  Sex: Female

DRUGS (6)
  1. ALLERGY [Concomitant]
  2. PROLIA [Suspect]
     Indication: OSTEOPOROSIS POSTMENOPAUSAL
     Dosage: 60 MG, Q6MO
     Dates: start: 20110901
  3. LISINOPRIL [Concomitant]
     Dosage: UNK MG, UNK
  4. HYDROCHLOROTHIAZIDE [Concomitant]
  5. CALCIUM PLUS [Concomitant]
  6. LOVAZA [Concomitant]

REACTIONS (2)
  - RESPIRATORY TRACT CONGESTION [None]
  - DYSPHONIA [None]
